FAERS Safety Report 9604843 (Version 2)
Quarter: 2013Q4

REPORT INFORMATION
  Report Type: Spontaneous
  Country: US (occurrence: US)
  Receive Date: 20131008
  Receipt Date: 20131008
  Transmission Date: 20140711
  Serious: No
  Sender: FDA-Public Use
  Company Number: US-BAXTER-2013BAX010521

PATIENT
  Sex: Male
  Weight: 87.17 kg

DRUGS (2)
  1. DIANEAL LOW CALCIUM [Suspect]
     Indication: PERITONEAL DIALYSIS
     Dosage: 2700 FILL VOLUME FOR 4 CYCLES
     Route: 033
  2. DIANEAL LOW CALCIUM [Suspect]
     Dosage: 2500 FILL VOLUME FOR ONE TIME EXCHANGE
     Route: 033

REACTIONS (1)
  - Abdominal distension [Recovering/Resolving]
